FAERS Safety Report 10480855 (Version 1)
Quarter: 2014Q3

REPORT INFORMATION
  Report Type: Spontaneous
  Country: US (occurrence: None)
  Receive Date: 20140904
  Receipt Date: 20140904
  Transmission Date: 20150326
  Serious: No
  Sender: FDA-Public Use
  Company Number: 227976

PATIENT
  Age: 69 Year
  Sex: Male

DRUGS (8)
  1. PICATO [Suspect]
     Active Substance: INGENOL MEBUTATE
     Indication: PRECANCEROUS CELLS PRESENT
     Dosage: (1 IN 1 D)
     Dates: start: 20140507, end: 20140508
  2. CALCIUM (CALCIUM) [Concomitant]
     Active Substance: CALCIUM
  3. CRESTOR [Concomitant]
     Active Substance: ROSUVASTATIN CALCIUM
  4. TRANDOLAPRIL (TRANDOLAPRIL) [Concomitant]
  5. METFORMIN [Concomitant]
     Active Substance: METFORMIN HYDROCHLORIDE
  6. MELOXICAM (MELOXICAM) [Concomitant]
     Active Substance: MELOXICAM
  7. PICATO [Suspect]
     Active Substance: INGENOL MEBUTATE
     Indication: MASS
     Dosage: (1 IN 1 D)
     Dates: start: 20140507, end: 20140508
  8. GLIMEPRIMIDE (GLIMEPIRIDE) [Concomitant]

REACTIONS (3)
  - Application site vesicles [None]
  - Application site pain [None]
  - Application site erythema [None]

NARRATIVE: CASE EVENT DATE: 20140508
